FAERS Safety Report 19701607 (Version 1)
Quarter: 2021Q3

REPORT INFORMATION
  Report Type: Report from Study
  Country: IE (occurrence: IE)
  Receive Date: 20210813
  Receipt Date: 20210813
  Transmission Date: 20211014
  Serious: Yes (Hospitalization)
  Sender: FDA-Public Use
  Company Number: IE-PFIZER INC-202101000398

PATIENT
  Sex: Male
  Weight: 61.3 kg

DRUGS (17)
  1. ORAMORPH SR SUSTAINED RELEASE [Concomitant]
     Active Substance: MORPHINE SULFATE
     Indication: PAIN
     Dosage: 5 MG, SINGLE
     Dates: start: 20191220, end: 20191220
  2. GEMTUZUMAB OZOGAMICIN [Suspect]
     Active Substance: GEMTUZUMAB OZOGAMICIN
     Indication: ACUTE MYELOID LEUKAEMIA
     Dosage: 5 MG, FREQUENCY OTHER, CYCLIC
     Route: 042
     Dates: start: 20191224, end: 20191224
  3. AMBISOME [Concomitant]
     Active Substance: AMPHOTERICIN B
     Indication: ANTIFUNGAL TREATMENT
     Dosage: 60 MG, 1X/DAY
     Dates: start: 20191220, end: 20191229
  4. ONDANSETRON [Concomitant]
     Active Substance: ONDANSETRON
     Indication: ANTIEMETIC SUPPORTIVE CARE
     Dosage: 8 MG, 3X/DAY
     Dates: start: 20191220, end: 20191231
  5. ONDANSETRON [Concomitant]
     Active Substance: ONDANSETRON
     Dosage: 4 MG, 3X/DAY
     Dates: start: 20191220, end: 20191220
  6. ORAMORPH SR SUSTAINED RELEASE [Concomitant]
     Active Substance: MORPHINE SULFATE
     Dosage: 10 MG, 4X/DAY
     Dates: start: 20191220, end: 20191220
  7. MOVICOL [Concomitant]
     Active Substance: POLYETHYLENE GLYCOL 3350\POTASSIUM CHLORIDE\SODIUM BICARBONATE\SODIUM CHLORIDE
     Indication: LAXATIVE SUPPORTIVE CARE
     Dosage: UNK
     Dates: start: 20191222, end: 20191228
  8. SEPTON [Concomitant]
     Active Substance: BETAMETHASONE DIPROPIONATE
     Indication: ANTIBIOTIC THERAPY
     Dosage: 960 MG, 2X/DAY
     Dates: start: 20191221, end: 20191229
  9. FUROSEMIDE. [Concomitant]
     Active Substance: FUROSEMIDE
     Indication: FLUID BALANCE ASSESSMENT
     Dosage: 40 MG
     Route: 042
     Dates: start: 20191225, end: 20191225
  10. VORICONAZOLE. [Concomitant]
     Active Substance: VORICONAZOLE
     Indication: ANTIFUNGAL TREATMENT
     Dosage: 200 MG, 2X/DAY
     Dates: start: 20191230, end: 20191231
  11. MITOXANTRONE HCL [Suspect]
     Active Substance: MITOXANTRONE HYDROCHLORIDE
     Indication: ACUTE MYELOID LEUKAEMIA
     Dosage: 22 MG/M2, 1X/DAY
     Route: 042
     Dates: start: 20191221, end: 20191224
  12. KCL RETARD [Concomitant]
     Active Substance: POTASSIUM CHLORIDE
     Indication: MINERAL SUPPLEMENTATION
     Dosage: 8 MMOL, 2X/DAY
     Dates: start: 20191227, end: 20191228
  13. PARACETAMOL [Concomitant]
     Active Substance: ACETAMINOPHEN
     Indication: PAIN
     Dosage: 1 G, 4X/DAY
     Dates: start: 20191224, end: 20191224
  14. CYCLIZINE [Concomitant]
     Active Substance: CYCLIZINE
     Indication: NAUSEA
     Dosage: 50 MG, 3X/DAY
     Dates: start: 20191223, end: 20191231
  15. CHLORPHENAMINE [Concomitant]
     Active Substance: CHLORPHENIRAMINE MALEATE
     Indication: ANTIALLERGIC THERAPY
     Dosage: 10 MG, 4X/DAY
     Dates: start: 20191224, end: 20191224
  16. ORAMORPH SR SUSTAINED RELEASE [Concomitant]
     Active Substance: MORPHINE SULFATE
     Dosage: 5 MG, EVERY 4 HRS
     Dates: start: 20191225, end: 20191225
  17. HYDROCORTISONE. [Concomitant]
     Active Substance: HYDROCORTISONE
     Indication: ADRENOCORTICAL INSUFFICIENCY ACUTE
     Dosage: 127 MG, EVERY 4 HRS
     Dates: start: 20191224, end: 20191224

REACTIONS (1)
  - Febrile neutropenia [Recovered/Resolved]

NARRATIVE: CASE EVENT DATE: 20200102
